FAERS Safety Report 9280770 (Version 1)
Quarter: 2013Q2

REPORT INFORMATION
  Report Type: Spontaneous
  Country: US (occurrence: US)
  Receive Date: 20130509
  Receipt Date: 20130509
  Transmission Date: 20140414
  Serious: Yes (Other)
  Sender: FDA-Public Use
  Company Number: US-PFIZER INC-2013140095

PATIENT
  Age: 55 Year
  Sex: Female
  Weight: 70.75 kg

DRUGS (1)
  1. LEVOXYL [Suspect]
     Indication: HYPOTHYROIDISM
     Dosage: HALF TABLET OF 0.125MG ON THURSDAY, SUNDAY AND 0.125MG TABLET ON REMAINING DAYS
     Route: 048
     Dates: start: 2010

REACTIONS (3)
  - Throat tightness [Not Recovered/Not Resolved]
  - Urticaria [Not Recovered/Not Resolved]
  - Hypersensitivity [Not Recovered/Not Resolved]
